FAERS Safety Report 18326132 (Version 1)
Quarter: 2020Q3

REPORT INFORMATION
  Report Type: Spontaneous
  Country: CA (occurrence: CA)
  Receive Date: 20200929
  Receipt Date: 20200929
  Transmission Date: 20201103
  Serious: Yes (Death)
  Sender: FDA-Public Use
  Company Number: CA-TEVA-2020-CA-1170507

PATIENT
  Age: 48 Year
  Sex: Male

DRUGS (1)
  1. TEVA?CAPECITABINE [Suspect]
     Active Substance: CAPECITABINE
     Indication: COLORECTAL CANCER
     Dosage: 14 DOSAGES,INTERVAL 12 HOURS
     Dates: start: 201912, end: 202001

REACTIONS (4)
  - Colorectal cancer recurrent [Fatal]
  - Enzyme abnormality [Unknown]
  - Expired product administered [Unknown]
  - Product dispensing error [Unknown]

NARRATIVE: CASE EVENT DATE: 202001
